FAERS Safety Report 5711399-8 (Version None)
Quarter: 2008Q2

REPORT INFORMATION
  Report Type: 
  Country: None (occurrence: None)
  Receive Date: 20080415
  Receipt Date: 20080410
  Transmission Date: 20081010
  Serious: Yes (Death, Hospitalization)
  Sender: FDA-Public Use
  Company Number: TCI2008A00890

PATIENT
  Age: 74 Year
  Sex: Male

DRUGS (2)
  1. LEUPROLIDE ACETATE [Suspect]
     Indication: PROSTATE CANCER
     Dosage: 11.25MG (11.25 MG, 1 IN 12 WK); SUBCUTANEOUS
     Route: 058
     Dates: end: 20080208
  2. CHLORMADINONE ACETATE TAB [Concomitant]

REACTIONS (8)
  - BLOOD IMMUNOGLOBULIN E INCREASED [None]
  - CELL MARKER INCREASED [None]
  - COLLAGEN DISORDER [None]
  - DISSEMINATED INTRAVASCULAR COAGULATION [None]
  - DRUG INEFFECTIVE [None]
  - INTERSTITIAL LUNG DISEASE [None]
  - RASH GENERALISED [None]
  - SURFACTANT PROTEIN INCREASED [None]
